FAERS Safety Report 5526849-X (Version None)
Quarter: 2007Q4

REPORT INFORMATION
  Report Type: 
  Country: None (occurrence: None)
  Receive Date: 20071127
  Receipt Date: 20071119
  Transmission Date: 20080405
  Serious: Yes (Disabling, Other)
  Sender: FDA-Public Use
  Company Number: BE-ASTRAZENECA-2007AC01886

PATIENT
  Age: 25120 Day
  Sex: Male

DRUGS (3)
  1. CRESTOR [Suspect]
     Route: 048
     Dates: start: 20070712, end: 20071001
  2. AMLOR [Concomitant]
     Dates: start: 20030101
  3. PERSANTINE [Concomitant]
     Dosage: PERSANTINE 75
     Dates: start: 20040101

REACTIONS (6)
  - ARTHRALGIA [None]
  - BRADYCARDIA [None]
  - FATIGUE [None]
  - MUSCLE SPASMS [None]
  - MUSCLE SWELLING [None]
  - MYALGIA [None]
